FAERS Safety Report 8862615 (Version 1)
Quarter: 2012Q4

REPORT INFORMATION
  Report Type: 
  Country: US (occurrence: US)
  Receive Date: 20121026
  Receipt Date: 20121026
  Transmission Date: 20130627
  Serious: Yes (Hospitalization, Other)
  Sender: FDA-Public Use
  Company Number: US-AMGEN-USASP2012067595

PATIENT
  Age: 53 Year
  Sex: Female

DRUGS (1)
  1. ENBREL [Suspect]
     Indication: RHEUMATOID ARTHRITIS
     Dosage: 25 mg, biweekly
     Dates: start: 20080115

REACTIONS (14)
  - Traumatic lung injury [Recovered/Resolved]
  - Ovarian cancer [Recovered/Resolved]
  - Staphylococcal infection [Recovered/Resolved]
  - Joint arthroplasty [Recovered/Resolved]
  - Arthralgia [Recovered/Resolved]
  - Visual acuity reduced [Unknown]
  - Musculoskeletal pain [Not Recovered/Not Resolved]
  - Tongue disorder [Not Recovered/Not Resolved]
  - Pulmonary mass [Not Recovered/Not Resolved]
  - Arthritis [Not Recovered/Not Resolved]
  - Glaucoma [Unknown]
  - Cough [Not Recovered/Not Resolved]
  - Oropharyngeal pain [Not Recovered/Not Resolved]
  - Bronchitis [Not Recovered/Not Resolved]
